FAERS Safety Report 20263774 (Version 1)
Quarter: 2021Q4

REPORT INFORMATION
  Report Type: Spontaneous
  Country: FR (occurrence: FR)
  Receive Date: 20211231
  Receipt Date: 20211231
  Transmission Date: 20220303
  Serious: Yes (Death)
  Sender: FDA-Public Use
  Company Number: None

PATIENT
  Age: 59 Year
  Sex: Male

DRUGS (2)
  1. MIRTAZAPINE [Suspect]
     Active Substance: MIRTAZAPINE
     Indication: Intentional overdose
     Dosage: NOT PROVIDED
     Dates: start: 20200623, end: 20200623
  2. ETHYL ALCOHOL [Suspect]
     Active Substance: ALCOHOL
     Indication: Intentional overdose
     Dosage: NOT PROVIDED
     Dates: start: 20200623, end: 20200623

REACTIONS (2)
  - Completed suicide [Fatal]
  - Poisoning deliberate [Fatal]

NARRATIVE: CASE EVENT DATE: 20200623
